FAERS Safety Report 11675098 (Version 1)
Quarter: 2015Q4

REPORT INFORMATION
  Report Type: Spontaneous
  Country: US (occurrence: US)
  Receive Date: 20151027
  Receipt Date: 20151027
  Transmission Date: 20160304
  Serious: No
  Sender: FDA-Public Use
  Company Number: US-ELI_LILLY_AND_COMPANY-US201008007005

PATIENT
  Age: 77 Year
  Sex: Female

DRUGS (1)
  1. FORTEO [Suspect]
     Active Substance: TERIPARATIDE
     Indication: OSTEOPOROSIS
     Dosage: 20 UG, OTHER
     Dates: start: 20100802, end: 20100819

REACTIONS (16)
  - Hyperhidrosis [Unknown]
  - Inappropriate schedule of drug administration [Recovered/Resolved]
  - Panic attack [Recovered/Resolved]
  - Nightmare [Recovered/Resolved]
  - Contusion [Recovering/Resolving]
  - Sweat gland disorder [Unknown]
  - Malaise [Unknown]
  - Pain [Unknown]
  - Nausea [Recovered/Resolved]
  - Vomiting [Recovered/Resolved]
  - Headache [Unknown]
  - Confusional state [Recovering/Resolving]
  - Vision blurred [Unknown]
  - Fall [Recovering/Resolving]
  - Balance disorder [Recovered/Resolved]
  - Depression [Recovering/Resolving]

NARRATIVE: CASE EVENT DATE: 20100802
